FAERS Safety Report 9160981 (Version 1)
Quarter: 2013Q1

REPORT INFORMATION
  Report Type: Spontaneous
  Country: US (occurrence: US)
  Receive Date: 20130313
  Receipt Date: 20130313
  Transmission Date: 20140127
  Serious: Yes (Hospitalization, Other)
  Sender: FDA-Public Use
  Company Number: US-PFIZER INC-2013083687

PATIENT
  Age: 84 Year
  Sex: Female
  Weight: 67.57 kg

DRUGS (4)
  1. LIPITOR [Suspect]
     Indication: BLOOD CHOLESTEROL ABNORMAL
     Dosage: 20 MG, 1X/DAY
  2. CLOPIDOGREL [Concomitant]
     Dosage: 75 MG, 1X/DAY
  3. AVAPRO [Concomitant]
     Indication: BLOOD PRESSURE ABNORMAL
     Dosage: 300 MG, 1X/DAY
  4. ASPIRIN [Concomitant]
     Dosage: 81 MG, UNK

REACTIONS (8)
  - Gastric disorder [Unknown]
  - Asthenia [Not Recovered/Not Resolved]
  - Asthenia [Unknown]
  - Gait disturbance [Unknown]
  - Myalgia [Unknown]
  - Arthralgia [Unknown]
  - Insomnia [Unknown]
  - Muscular weakness [Unknown]
